FAERS Safety Report 5307287-1 (Version None)
Quarter: 2007Q1

REPORT INFORMATION
  Report Type: 
  Country: None (occurrence: None)
  Receive Date: 20070201
  Receipt Date: 20061206
  Transmission Date: 20070707
  Serious: No
  Sender: FDA-Public Use
  Company Number: 2006PV026461

PATIENT
  Sex: Female

DRUGS (7)
  1. BYETTA [Suspect]
     Indication: DRUG USE FOR UNKNOWN INDICATION
     Dosage: 10 MCG; SC
     Route: 058
  2. ATENOLOL [Concomitant]
  3. HYDROCHLOROTHIAZIDE [Concomitant]
  4. AMARYL [Concomitant]
  5. ASPIRIN [Concomitant]
  6. ACTOS [Concomitant]
  7. FOSINOPRIL SODIUM [Concomitant]

REACTIONS (2)
  - BILE DUCT CANCER [None]
  - WEIGHT DECREASED [None]
